FAERS Safety Report 5770964-2 (Version None)
Quarter: 2008Q2

REPORT INFORMATION
  Report Type: 
  Country: None (occurrence: None)
  Receive Date: 20080613
  Receipt Date: 20080521
  Transmission Date: 20081010
  Serious: No
  Sender: FDA-Public Use
  Company Number: US-ABBOTT-08P-163-0452874-00

PATIENT
  Sex: Female
  Weight: 83.99 kg

DRUGS (13)
  1. HUMIRA [Suspect]
     Indication: PSORIASIS
     Route: 058
     Dates: start: 20080521
  2. HUMIRA [Suspect]
     Route: 058
     Dates: start: 20080514, end: 20080514
  3. HUMIRA [Suspect]
     Route: 058
  4. FEXOFENADINE [Concomitant]
     Indication: SEASONAL ALLERGY
     Route: 048
     Dates: start: 20060101
  5. ASTOLIN [Concomitant]
     Indication: SEASONAL ALLERGY
     Route: 048
     Dates: start: 20060101
  6. SPIRIVAIR [Concomitant]
     Indication: SEASONAL ALLERGY
     Route: 055
     Dates: start: 20060101
  7. METOPROLOL TARTRATE [Concomitant]
     Indication: HYPERTENSION
     Route: 048
  8. SIMVASTATIN [Concomitant]
     Indication: BLOOD CHOLESTEROL INCREASED
     Route: 048
     Dates: start: 20070101
  9. ASPIRIN [Concomitant]
     Indication: CARDIOVASCULAR EVENT PROPHYLAXIS
     Dosage: REGULAR BAYER COATED
     Route: 048
     Dates: start: 20060101
  10. CLONAZEPAM [Concomitant]
     Indication: ANXIETY
     Route: 048
  11. TRAZODONE HCL [Concomitant]
     Indication: ANXIETY
     Route: 048
  12. CYCLOBENZAPRINE HCL [Concomitant]
     Indication: PAIN
     Route: 048
     Dates: start: 20070101
  13. CLONOPIN [Concomitant]
     Indication: HYPERTENSION
     Route: 048

REACTIONS (1)
  - ACCIDENTAL EXPOSURE [None]
